FAERS Safety Report 23249098 (Version 1)
Quarter: 2023Q4

REPORT INFORMATION
  Report Type: Other
  Country: US (occurrence: None)
  Receive Date: 20231201
  Receipt Date: 20231201
  Transmission Date: 20240110
  Serious: Yes (Other)
  Sender: FDA-Public Use
  Company Number: US-ROCHE-3466090

PATIENT

DRUGS (3)
  1. RITUXIMAB [Suspect]
     Active Substance: RITUXIMAB
     Indication: Follicular lymphoma
     Dosage: 4 DOSE
     Route: 042
  2. UTOMILUMAB [Suspect]
     Active Substance: UTOMILUMAB
     Indication: Follicular lymphoma
     Route: 042
  3. AVELUMAB [Suspect]
     Active Substance: AVELUMAB
     Indication: Follicular lymphoma
     Route: 042

REACTIONS (9)
  - Neutropenia [Unknown]
  - Hypertension [Unknown]
  - Hypertriglyceridaemia [Unknown]
  - Hypophosphataemia [Unknown]
  - Lymphopenia [Unknown]
  - COVID-19 [Unknown]
  - Embolism [Unknown]
  - Fatigue [Unknown]
  - Infusion related reaction [Unknown]
